FAERS Safety Report 18701009 (Version 1)
Quarter: 2021Q1

REPORT INFORMATION
  Report Type: Spontaneous
  Country: US (occurrence: US)
  Receive Date: 20210104
  Receipt Date: 20210104
  Transmission Date: 20210419
  Serious: Yes (Hospitalization)
  Sender: FDA-Public Use
  Company Number: None

PATIENT
  Age: 86 Year
  Sex: Male

DRUGS (10)
  1. METOPROL TAR [Concomitant]
  2. FENOFIBRATE. [Concomitant]
     Active Substance: FENOFIBRATE
  3. LEVEMIR [Concomitant]
     Active Substance: INSULIN DETEMIR
  4. ALLOPURINOL. [Concomitant]
     Active Substance: ALLOPURINOL
  5. LORAZEPAM. [Concomitant]
     Active Substance: LORAZEPAM
  6. OMEPRAZOLE. [Concomitant]
     Active Substance: OMEPRAZOLE
  7. SIMVASTATIN. [Concomitant]
     Active Substance: SIMVASTATIN
  8. ESBRIET [Suspect]
     Active Substance: PIRFENIDONE
     Indication: PULMONARY FIBROSIS
     Route: 048
     Dates: start: 20200605
  9. BENZONATATE. [Concomitant]
     Active Substance: BENZONATATE
  10. PREDNISONE. [Concomitant]
     Active Substance: PREDNISONE

REACTIONS (2)
  - Fibrosis [None]
  - Therapy interrupted [None]

NARRATIVE: CASE EVENT DATE: 20201228
